FAERS Safety Report 10222559 (Version 2)
Quarter: 2014Q2

REPORT INFORMATION
  Report Type: Spontaneous
  Country: US (occurrence: US)
  Receive Date: 20140606
  Receipt Date: 20140606
  Transmission Date: 20141212
  Serious: No
  Sender: FDA-Public Use
  Company Number: US-MYLANLABS-2013S1019527

PATIENT
  Age: 49 Year
  Sex: Female
  Weight: 83.92 kg

DRUGS (15)
  1. DOXEPIN HYDROCHLORIDE CAPSULES, USP [Suspect]
     Indication: INSOMNIA
     Route: 048
  2. DOXEPIN HYDROCHLORIDE CAPSULES, USP [Suspect]
     Indication: OFF LABEL USE
     Route: 048
  3. ARMOUR THYROID [Concomitant]
     Dosage: 45 MG QAM; 30 MG AT NOON
  4. LEVOTHYROXINE [Concomitant]
  5. CORTEF /00028601/ [Concomitant]
     Dosage: 15MG QAM AND 10MG AT NOON
  6. DHEA [Concomitant]
  7. PREGNENOLONE [Concomitant]
  8. FLORINEF [Concomitant]
     Dosage: .1 IN AM AND .05 AT NOON
  9. KLOR-CON [Concomitant]
  10. SALT [Concomitant]
     Dosage: SEA SALT
  11. ADRENAL COMPLEX [Concomitant]
     Dosage: DENATROPHIN RAW ADRENAL TABLET
  12. VITAMINS [Concomitant]
  13. MINERAL SUPPLEMENTS [Concomitant]
  14. B100 [Concomitant]
  15. SODIUM CHLORIDE [Concomitant]
     Route: 042

REACTIONS (3)
  - Hypersensitivity [Recovered/Resolved]
  - Muscle spasms [Recovered/Resolved]
  - Reaction to drug excipients [Recovered/Resolved]
